FAERS Safety Report 8001143-6 (Version None)
Quarter: 2011Q4

REPORT INFORMATION
  Report Type: 
  Country: None (occurrence: None)
  Receive Date: 20111222
  Receipt Date: 20111216
  Transmission Date: 20120403
  Serious: Yes (Disabling)
  Sender: FDA-Public Use
  Company Number: CA-BAYER-2011-121100

PATIENT
  Sex: Female

DRUGS (1)
  1. AVELOX [Suspect]

REACTIONS (6)
  - HAND DEFORMITY [None]
  - FOOT DEFORMITY [None]
  - PAIN [None]
  - TENDONITIS [None]
  - CONDITION AGGRAVATED [None]
  - DECREASED ACTIVITY [None]
